FAERS Safety Report 6122570-8 (Version None)
Quarter: 2009Q1

REPORT INFORMATION
  Report Type: 
  Country: None (occurrence: None)
  Receive Date: 20090318
  Receipt Date: 20090316
  Transmission Date: 20090719
  Serious: Yes (Congenital Anomaly)
  Sender: FDA-Public Use
  Company Number: FR-BRISTOL-MYERS SQUIBB COMPANY-14544530

PATIENT
  Sex: Female
  Weight: 3 kg

DRUGS (3)
  1. QUESTRAN [Suspect]
     Dosage: QUESTRAN POWDER 4 G HALF A SACHET A DAY ORALLY BY MOTHER
     Route: 064
  2. IMUREL [Suspect]
     Dosage: 125 MILLIGRAM/D THEN 50 MG/D IN THE THIRD TRIMESTER
     Route: 064
  3. VITAMIN B-12 [Concomitant]
     Dosage: 1000/GAMMA/MONTH.

REACTIONS (1)
  - SPINE MALFORMATION [None]
